FAERS Safety Report 25266126 (Version 1)
Quarter: 2025Q2

REPORT INFORMATION
  Report Type: Spontaneous
  Country: US (occurrence: US)
  Receive Date: 20250504
  Receipt Date: 20250504
  Transmission Date: 20250716
  Serious: No
  Sender: ELI LILLY AND COMPANY
  Company Number: US-ELI_LILLY_AND_COMPANY-US202504024724

PATIENT
  Age: 68 Year
  Sex: Male
  Weight: 65.76 kg

DRUGS (1)
  1. HUMALOG [Suspect]
     Active Substance: INSULIN LISPRO
     Indication: Product used for unknown indication
     Route: 065

REACTIONS (5)
  - Dermatitis [Recovering/Resolving]
  - Skin infection [Recovering/Resolving]
  - Skin swelling [Recovering/Resolving]
  - Discomfort [Unknown]
  - Pain [Unknown]

NARRATIVE: CASE EVENT DATE: 20250409
